FAERS Safety Report 15041631 (Version 1)
Quarter: 2018Q2

REPORT INFORMATION
  Report Type: Spontaneous
  Country: DE (occurrence: DE)
  Receive Date: 20180621
  Receipt Date: 20180621
  Transmission Date: 20180711
  Serious: Yes (Hospitalization)
  Sender: FDA-Public Use
  Company Number: DE-TEVA-2018-DE-911212

PATIENT
  Age: 50 Year
  Sex: Female

DRUGS (6)
  1. PREDNISOLONE. [Concomitant]
     Active Substance: PREDNISOLONE
     Dosage: 5 MG, 1-0-0-0; ALTERNATING 0.5-0-0-0
  2. INSULIN [Concomitant]
     Active Substance: INSULIN NOS
     Dosage: NK IE, NK, INSULINPUMPE
     Route: 065
  3. COLECALCIFEROL [Concomitant]
     Active Substance: CHOLECALCIFEROL
     Dosage: NK MG, 1-0-0-0
     Route: 065
  4. LEVOTHYROXIN [Concomitant]
     Active Substance: LEVOTHYROXINE
     Dosage: 100 MICROGRAM DAILY;  1-0-0-0
  5. FOLSAEURE [Concomitant]
     Active Substance: FOLIC ACID
     Dosage: NK MG, 1 X ON MONDAY
     Route: 065
  6. METHOTREXATE. [Suspect]
     Active Substance: METHOTREXATE
     Dosage: 20 MG, ONCE A WEEK
     Route: 065

REACTIONS (4)
  - Headache [Unknown]
  - Paraesthesia [Unknown]
  - Depressed level of consciousness [Unknown]
  - Muscular weakness [Unknown]
